FAERS Safety Report 8747049 (Version 2)
Quarter: 2012Q4

REPORT INFORMATION
  Report Type: 
  Country: AU (occurrence: AU)
  Receive Date: 20120827
  Receipt Date: 20120929
  Transmission Date: 20130627
  Serious: Yes (Death)
  Sender: FDA-Public Use
  Company Number: AU-B.I. PHARMACEUTICALS,INC./RIDGEFIELD-2012-AU-01509AU

PATIENT
  Age: 86 None
  Sex: Male

DRUGS (8)
  1. PRADAXA [Suspect]
     Dosage: 220 mg
  2. AMIODARONE HYDROCHLORIDE [Concomitant]
     Dosage: 100 mg
     Route: 048
  3. FRUSEMIDE [Concomitant]
     Dosage: 80 mg
     Route: 048
  4. LIPITOR [Concomitant]
     Dosage: 40 mg
     Route: 048
  5. METOPROLOL TARTRATE [Concomitant]
     Dosage: 40 mg
     Route: 048
  6. SEROQUEL [Concomitant]
     Dosage: 37.5 mg
     Route: 048
  7. XALACOM [Concomitant]
     Dosage: .005%/.5% 1 drop both eyes
     Route: 061
  8. TEMAZE [Concomitant]
     Dosage: 10 mg
     Route: 048

REACTIONS (3)
  - Cardiac failure [Fatal]
  - Condition aggravated [Unknown]
  - Depression [Unknown]
